FAERS Safety Report 7005909-0 (Version None)
Quarter: 2010Q3

REPORT INFORMATION
  Report Type: 
  Country: None (occurrence: None)
  Receive Date: 20100921
  Receipt Date: 20100917
  Transmission Date: 20110219
  Serious: Yes (Death, Hospitalization)
  Sender: FDA-Public Use
  Company Number: PHHY2010AU58305

PATIENT
  Sex: Female

DRUGS (1)
  1. TASIGNA [Suspect]
     Indication: CHRONIC MYELOID LEUKAEMIA
     Dosage: 800 MG
     Route: 048
     Dates: start: 20080701

REACTIONS (6)
  - DEATH [None]
  - DYSPNOEA [None]
  - PLATELET COUNT INCREASED [None]
  - POOR PERIPHERAL CIRCULATION [None]
  - PULMONARY FIBROSIS [None]
  - SKIN LESION [None]
